FAERS Safety Report 10161753 (Version 2)
Quarter: 2014Q2

REPORT INFORMATION
  Report Type: Spontaneous
  Country: US (occurrence: US)
  Receive Date: 20140509
  Receipt Date: 20140509
  Transmission Date: 20141212
  Serious: Yes (Other)
  Sender: FDA-Public Use
  Company Number: US-JNJFOC-20140205850

PATIENT
  Age: 47 Year
  Sex: Male

DRUGS (8)
  1. REMICADE [Suspect]
     Indication: PSORIATIC ARTHROPATHY
     Dosage: 7.5 MG/KG ROUNDED TO 1000 MG
     Route: 042
     Dates: start: 20110803
  2. REMICADE [Suspect]
     Indication: PSORIATIC ARTHROPATHY
     Route: 042
     Dates: start: 20131120, end: 20131120
  3. LISINOPRIL [Concomitant]
     Route: 065
     Dates: start: 20131108
  4. ASPIRIN [Concomitant]
     Route: 065
  5. PLAVIX [Concomitant]
     Dates: start: 20131108
  6. LIPITOR [Concomitant]
     Route: 065
     Dates: start: 20131108
  7. METOPROLOL XL [Concomitant]
     Route: 065
  8. TEMOVATE [Concomitant]
     Route: 061

REACTIONS (7)
  - Myocardial infarction [Unknown]
  - Joint swelling [Recovered/Resolved]
  - Oedema peripheral [Recovered/Resolved]
  - Pruritus [Recovered/Resolved]
  - Peripheral swelling [Recovered/Resolved]
  - Rash [Unknown]
  - Urticaria [Unknown]
